FAERS Safety Report 4355978-1 (Version None)
Quarter: 2004Q2

REPORT INFORMATION
  Report Type: 
  Country: None (occurrence: None)
  Receive Date: 20040507
  Receipt Date: 20040507
  Transmission Date: 20050107
  Serious: Yes (Hospitalization)
  Sender: FDA-Public Use
  Company Number: None

PATIENT
  Sex: Female
  Weight: 51.8 kg

DRUGS (1)
  1. IRESSA [Suspect]
     Indication: GLIOBLASTOMA MULTIFORME
     Dosage: 500 MG EVERY OTHER DAY
     Dates: start: 20031202

REACTIONS (1)
  - CONVULSION [None]
